FAERS Safety Report 9665682 (Version 3)
Quarter: 2013Q4

REPORT INFORMATION
  Report Type: Report from Study
  Country: CA (occurrence: CA)
  Receive Date: 20131104
  Receipt Date: 20131203
  Transmission Date: 20140711
  Serious: Yes (Death, Hospitalization, Other)
  Sender: FDA-Public Use
  Company Number: PHHY2013CA123999

PATIENT
  Sex: Male

DRUGS (2)
  1. CLOZARIL [Suspect]
     Indication: SCHIZOPHRENIA
     Dosage: UNK UKN, UNK
     Dates: start: 20130923, end: 20131109
  2. ASPIRIN [Concomitant]
     Dosage: UNK UKN, UNK

REACTIONS (3)
  - Death [Fatal]
  - Infarction [Unknown]
  - Cerebral haemorrhage [Unknown]
